FAERS Safety Report 12115234 (Version 1)
Quarter: 2016Q1

REPORT INFORMATION
  Report Type: Spontaneous
  Country: US (occurrence: US)
  Receive Date: 20160225
  Receipt Date: 20160225
  Transmission Date: 20160526
  Serious: Yes (Hospitalization, Other)
  Sender: FDA-Public Use
  Company Number: US-OTSUKA-2016_004333

PATIENT
  Sex: Male

DRUGS (2)
  1. REXULTI [Suspect]
     Active Substance: BREXPIPRAZOLE
     Indication: SCHIZOAFFECTIVE DISORDER
     Dosage: 4 MG, UNK
     Route: 065
     Dates: end: 20160209
  2. REXULTI [Suspect]
     Active Substance: BREXPIPRAZOLE
     Dosage: UNK
     Route: 065

REACTIONS (15)
  - Pyrexia [Unknown]
  - Dysarthria [Unknown]
  - Fluid intake reduced [Unknown]
  - Fatigue [Unknown]
  - Loss of consciousness [Not Recovered/Not Resolved]
  - Stupor [Not Recovered/Not Resolved]
  - Muscular weakness [Unknown]
  - Unresponsive to stimuli [Not Recovered/Not Resolved]
  - Neuroleptic malignant syndrome [Unknown]
  - Thirst decreased [Unknown]
  - Anal incontinence [Unknown]
  - Asthenia [Unknown]
  - Off label use [Unknown]
  - Abasia [Unknown]
  - Hypersomnia [Unknown]

NARRATIVE: CASE EVENT DATE: 20160206
